FAERS Safety Report 20563460 (Version 4)
Quarter: 2022Q3

REPORT INFORMATION
  Report Type: Spontaneous
  Country: US (occurrence: US)
  Receive Date: 20220308
  Receipt Date: 20220711
  Transmission Date: 20221026
  Serious: Yes (Other)
  Sender: FDA-Public Use
  Company Number: US-PFIZER INC-202200343835

PATIENT
  Age: 90 Year

DRUGS (1)
  1. ESTRING [Suspect]
     Active Substance: ESTRADIOL
     Dosage: UNK

REACTIONS (6)
  - Fungal infection [Unknown]
  - Urinary tract infection [Unknown]
  - Illness [Unknown]
  - COVID-19 [Unknown]
  - Pain [Unknown]
  - Limb injury [Unknown]
